FAERS Safety Report 10431510 (Version 1)
Quarter: 2014Q3

REPORT INFORMATION
  Report Type: Spontaneous
  Country: US (occurrence: US)
  Receive Date: 20140904
  Receipt Date: 20140904
  Transmission Date: 20150326
  Serious: No
  Sender: FDA-Public Use
  Company Number: US-PFIZER INC-2014242352

PATIENT
  Age: 49 Year
  Sex: Female

DRUGS (1)
  1. CLEOCIN [Suspect]
     Active Substance: CLINDAMYCIN PHOSPHATE
     Indication: INFECTION
     Dosage: UNK
     Route: 067

REACTIONS (2)
  - Drug ineffective [Unknown]
  - Product quality issue [Unknown]
